FAERS Safety Report 10244102 (Version 1)
Quarter: 2014Q2

REPORT INFORMATION
  Report Type: Spontaneous
  Country: US (occurrence: None)
  Receive Date: 20140616
  Receipt Date: 20140616
  Transmission Date: 20141212
  Serious: Yes (Other)
  Sender: FDA-Public Use
  Company Number: None

PATIENT
  Sex: Male

DRUGS (1)
  1. COPAXONE [Suspect]
     Indication: MULTIPLE SCLEROSIS
     Route: 058
     Dates: start: 20130816

REACTIONS (8)
  - Heart rate increased [None]
  - Respiratory rate increased [None]
  - Swollen tongue [None]
  - Erythema [None]
  - Ocular hyperaemia [None]
  - Hyperhidrosis [None]
  - Diarrhoea [None]
  - Panic reaction [None]
